FAERS Safety Report 7810932-X (Version None)
Quarter: 2011Q4

REPORT INFORMATION
  Report Type: 
  Country: None (occurrence: None)
  Receive Date: 20111013
  Receipt Date: 20111011
  Transmission Date: 20120403
  Serious: Yes (Other)
  Sender: FDA-Public Use
  Company Number: US-PFIZER INC-2011243131

PATIENT
  Sex: Male
  Weight: 95.2 kg

DRUGS (9)
  1. LYRICA [Suspect]
     Indication: FIBROMYALGIA
     Dosage: 200 MG, 2X/DAY
     Route: 048
     Dates: start: 20091001
  2. LAMOTRIGINE [Concomitant]
     Dosage: 200 MG, 2X/DAY
  3. LUNESTA [Concomitant]
     Indication: AMNESIA
     Dosage: 3 MG, 1X/DAY
  4. VENLAFAXINE HCL EXTENDED-RELEASE [Concomitant]
     Indication: BIPOLAR DISORDER
     Dosage: 150 MG, 1X/DAY
  5. VENLAFAXINE HCL EXTENDED-RELEASE [Concomitant]
     Indication: DEPRESSION
  6. UROXATRAL [Concomitant]
     Indication: BENIGN PROSTATIC HYPERPLASIA
     Dosage: 10 MG, 1X/DAY
  7. CELEBREX [Concomitant]
     Indication: FIBROMYALGIA
     Dosage: 200 MG, AS NEEDED
  8. ZYRTEC [Concomitant]
     Indication: HYPERSENSITIVITY
     Dosage: 10 MG, 1X/DAY
  9. SUMATRIPTAN [Concomitant]
     Indication: MIGRAINE
     Dosage: 100 MG, AS NEEDED

REACTIONS (2)
  - FIBROMYALGIA [None]
  - EUPHORIC MOOD [None]
